FAERS Safety Report 21149686 (Version 5)
Quarter: 2022Q3

REPORT INFORMATION
  Report Type: Spontaneous
  Country: AT (occurrence: AT)
  Receive Date: 20220729
  Receipt Date: 20220915
  Transmission Date: 20221027
  Serious: Yes (Other)
  Sender: FDA-Public Use
  Company Number: AT-ROCHE-3134464

PATIENT
  Sex: Male

DRUGS (6)
  1. BENDAMUSTINE HYDROCHLORIDE [Suspect]
     Active Substance: BENDAMUSTINE HYDROCHLORIDE
     Indication: Diffuse large B-cell lymphoma
     Dosage: (1ST SYSTEMIC TREATMENT - 6 CYCLES)
     Route: 042
     Dates: start: 202009, end: 202102
  2. LENALIDOMIDE [Suspect]
     Active Substance: LENALIDOMIDE
     Indication: Diffuse large B-cell lymphoma
     Dosage: 1ST SYSTEMIC TREATMENT - 6 CYCLES),(2 ND SYSTEMIC TREATMENT)
     Route: 065
     Dates: start: 202104, end: 202205
  3. OXALIPLATIN [Suspect]
     Active Substance: OXALIPLATIN
     Indication: Diffuse large B-cell lymphoma
     Dosage: 3 RD SYSTEMIC TREATMENT)
     Route: 065
     Dates: start: 20220602, end: 20220704
  4. RITUXIMAB [Suspect]
     Active Substance: RITUXIMAB
     Indication: Diffuse large B-cell lymphoma
     Dosage: (1ST SYSTEMIC TREATMENT - 6 CYCLES)
     Route: 042
     Dates: start: 202009, end: 202102
  5. POLIVY [Suspect]
     Active Substance: POLATUZUMAB VEDOTIN-PIIQ
     Indication: Diffuse large B-cell lymphoma
     Dosage: (1ST SYSTEMIC TREATMENT - 6 CYCLES)
     Route: 065
     Dates: start: 202009, end: 202102
  6. GEMCITABINE [Suspect]
     Active Substance: GEMCITABINE
     Indication: Diffuse large B-cell lymphoma
     Dosage: (3 RD SYSTEMIC TREATMENT)
     Route: 065
     Dates: start: 20220602, end: 20220704

REACTIONS (5)
  - Malignant neoplasm progression [Unknown]
  - Alanine aminotransferase decreased [Unknown]
  - Blood bilirubin decreased [Unknown]
  - Aspartate aminotransferase decreased [Unknown]
  - Off label use [Unknown]

NARRATIVE: CASE EVENT DATE: 20200901
